FAERS Safety Report 9223454 (Version 1)
Quarter: 2013Q2

REPORT INFORMATION
  Report Type: Spontaneous
  Country: BR (occurrence: BR)
  Receive Date: 20130410
  Receipt Date: 20130410
  Transmission Date: 20140414
  Serious: Yes (Hospitalization, Other)
  Sender: FDA-Public Use
  Company Number: BR-ASTRAZENECA-2013SE21531

PATIENT
  Age: 879 Month
  Sex: Male
  Weight: 70 kg

DRUGS (7)
  1. ATACAND HCT [Suspect]
     Indication: HYPERTENSION
     Dosage: 16/12.5 MG DAILY
     Route: 048
     Dates: start: 2011
  2. TEGRETOL [Suspect]
     Indication: EPILEPSY
     Route: 065
     Dates: end: 201302
  3. TEGRETOL [Suspect]
     Indication: EPILEPSY
     Route: 065
     Dates: start: 201302, end: 201302
  4. TEGRETOL [Suspect]
     Indication: EPILEPSY
     Route: 065
     Dates: start: 201302, end: 201303
  5. TEGRETOL [Suspect]
     Indication: EPILEPSY
     Route: 065
     Dates: start: 201303
  6. TEGRETOL [Suspect]
     Indication: EPILEPSY
     Route: 065
     Dates: start: 201303
  7. DEPAKOTE [Concomitant]

REACTIONS (8)
  - Convulsion [Recovered/Resolved]
  - Vomiting [Recovered/Resolved]
  - Pneumonia [Recovered/Resolved]
  - Blood pressure increased [Recovered/Resolved]
  - Swelling [Recovered/Resolved]
  - Aspiration [Recovered/Resolved]
  - Blood glucose increased [Recovered/Resolved]
  - Urinary tract infection [Recovered/Resolved]
